FAERS Safety Report 10056036 (Version 2)
Quarter: 2014Q2

REPORT INFORMATION
  Report Type: Spontaneous
  Country: US (occurrence: US)
  Receive Date: 20140403
  Receipt Date: 20140403
  Transmission Date: 20141212
  Serious: Yes (Hospitalization)
  Sender: FDA-Public Use
  Company Number: PHEH2014US004205

PATIENT
  Age: 39 Year
  Sex: Female
  Weight: 92.97 kg

DRUGS (16)
  1. GILENYA [Suspect]
     Dosage: 0.5 MG, QD
     Route: 048
     Dates: start: 20130711
  2. SEASONIQUE [Concomitant]
     Dosage: 1 DF, UNK
  3. NEURONTIN [Concomitant]
  4. VITAMIN D [Concomitant]
     Dosage: 1 DF, QD
  5. B-COMPLEX                          /00003501/ [Concomitant]
  6. GABAPENTIN [Concomitant]
     Indication: HEADACHE
     Dosage: 600 MG, TID
     Route: 048
  7. GABAPENTIN [Concomitant]
     Indication: EYE PAIN
  8. MEDROL [Concomitant]
     Dosage: 4 MG, UNK
  9. GRALISE [Concomitant]
     Dosage: 300 MG, QD
     Route: 048
  10. MAGNESIUM SULFATE [Concomitant]
     Dosage: 2 DF, DAILY
     Route: 048
  11. ULTRA FLORA RESTORE [Concomitant]
     Dosage: 2 DF, DAILY
     Route: 048
  12. PHENERGAN                          /00404701/ [Concomitant]
     Dosage: 25 MG, PRN
  13. FIORICET [Concomitant]
     Indication: MIGRAINE
     Dosage: 3 DF, DAILY
     Route: 048
  14. SOLUMEDROL [Concomitant]
     Route: 042
  15. REVIVE                             /02233701/ [Concomitant]
     Dosage: 2 DF, BID
     Route: 048
  16. SUMATRIPTAN [Concomitant]

REACTIONS (21)
  - Multiple sclerosis relapse [Unknown]
  - Muscle spasticity [Unknown]
  - Gait spastic [Recovering/Resolving]
  - Vision blurred [Unknown]
  - Sedation [Unknown]
  - Dizziness [Recovering/Resolving]
  - Dizziness postural [Unknown]
  - Dyskinesia [Unknown]
  - Fatigue [Unknown]
  - Myopia [Not Recovered/Not Resolved]
  - Photophobia [Unknown]
  - Optic atrophy [Recovering/Resolving]
  - Lacrimation decreased [Unknown]
  - Eye pain [Not Recovered/Not Resolved]
  - Vestibular disorder [Unknown]
  - Tinnitus [Recovering/Resolving]
  - Vertigo [Recovering/Resolving]
  - Blood pressure decreased [Unknown]
  - Nausea [Unknown]
  - Emotional distress [Unknown]
  - Migraine [Not Recovered/Not Resolved]
